FAERS Safety Report 4314267-1 (Version None)
Quarter: 2004Q1

REPORT INFORMATION
  Report Type: 
  Country: None (occurrence: None)
  Receive Date: 20040308
  Receipt Date: 20040224
  Transmission Date: 20041129
  Serious: Yes (Hospitalization)
  Sender: FDA-Public Use
  Company Number: 2003167396US

PATIENT
  Age: 21 Year
  Sex: Male
  Weight: 81.6 kg

DRUGS (4)
  1. DELTASONE [Suspect]
     Indication: CROHN'S DISEASE
     Dosage: 10 MG, TID, ORAL
     Route: 048
     Dates: start: 19810807
  2. PEPCID [Concomitant]
  3. IMURAN [Concomitant]
  4. SINGULAIR(MONTELUKAS SODIUM) [Concomitant]

REACTIONS (4)
  - BONE DISORDER [None]
  - CONTUSION [None]
  - IMPAIRED HEALING [None]
  - WEIGHT INCREASED [None]
